FAERS Safety Report 22267160 (Version 1)
Quarter: 2023Q2

REPORT INFORMATION
  Report Type: Spontaneous
  Country: CA (occurrence: CA)
  Receive Date: 20230428
  Receipt Date: 20230428
  Transmission Date: 20230722
  Serious: Yes (Death, Other)
  Sender: FDA-Public Use
  Company Number: CA-MALLINCKRODT-MNK202301365

PATIENT
  Age: 4 Week
  Sex: Female
  Weight: 3 kg

DRUGS (2)
  1. NITRIC OXIDE [Suspect]
     Active Substance: NITRIC OXIDE
     Indication: Atrial tachycardia
     Dosage: UNKNOWN
     Route: 055
  2. NITRIC OXIDE [Suspect]
     Active Substance: NITRIC OXIDE
     Indication: Respiratory distress

REACTIONS (7)
  - Death [Fatal]
  - Pulmonary arterial hypertension [Unknown]
  - Aspiration [Unknown]
  - Pulmonary oedema [Unknown]
  - General physical health deterioration [Unknown]
  - Haemodynamic instability [Unknown]
  - Product use in unapproved indication [Unknown]
